FAERS Safety Report 7889351 (Version 3)
Quarter: 2012Q4

REPORT INFORMATION
  Report Type: 
  Country: FR (occurrence: FR)
  Receive Date: 20110407
  Receipt Date: 20120918
  Transmission Date: 20130627
  Serious: Yes (Hospitalization, Other)
  Sender: FDA-Public Use
  Company Number: FR-JNJFOC-20110311377

PATIENT
  Age: 77 Year
  Sex: Female

DRUGS (10)
  1. HALDOL [Suspect]
     Indication: PRODUCT USED FOR UNKNOWN INDICATION
     Route: 048
  2. TOPALGIC [Interacting]
     Indication: PRODUCT USED FOR UNKNOWN INDICATION
     Route: 048
  3. TRANXENE [Interacting]
     Indication: PRODUCT USED FOR UNKNOWN INDICATION
     Route: 048
  4. IMOVANE [Interacting]
     Indication: PRODUCT USED FOR UNKNOWN INDICATION
     Route: 048
  5. LYSANXIA [Interacting]
     Indication: PRODUCT USED FOR UNKNOWN INDICATION
     Route: 048
  6. DAFALGAN [Concomitant]
     Route: 048
  7. LOVENOX [Concomitant]
  8. COVERSYL [Concomitant]
  9. LASILIX [Concomitant]
  10. XATRAL [Concomitant]

REACTIONS (8)
  - Confusional state [Recovered/Resolved]
  - Somnolence [Recovered/Resolved]
  - Respiratory depression [Recovered/Resolved]
  - Hypoxia [Recovered/Resolved]
  - Hypercapnia [Recovered/Resolved]
  - Toxicity to various agents [Recovered/Resolved]
  - Drug interaction [Unknown]
  - Aggression [Unknown]
